FAERS Safety Report 5175683-1 (Version None)
Quarter: 2006Q4

REPORT INFORMATION
  Report Type: 
  Country: None (occurrence: None)
  Receive Date: 20061215
  Receipt Date: 20060717
  Transmission Date: 20070319
  Serious: No
  Sender: FDA-Public Use
  Company Number: US-AMGEN-KDL186617

PATIENT
  Sex: Female

DRUGS (2)
  1. ENBREL [Suspect]
     Indication: ARTHRITIS
     Route: 058
     Dates: start: 20050901
  2. METHOTREXATE [Concomitant]
     Dates: start: 20050101

REACTIONS (2)
  - BREAST PAIN [None]
  - PAIN IN EXTREMITY [None]
